FAERS Safety Report 8112330-0 (Version None)
Quarter: 2012Q1

REPORT INFORMATION
  Report Type: 
  Country: None (occurrence: None)
  Receive Date: 20120203
  Receipt Date: 20120104
  Transmission Date: 20120608
  Serious: No
  Sender: FDA-Public Use
  Company Number: US-ASTRAZENECA-2011SE72585

PATIENT
  Age: 60 Year
  Sex: Male

DRUGS (1)
  1. VANDETANIB [Suspect]
     Indication: THYROID CANCER
     Route: 048

REACTIONS (4)
  - DYSPNOEA [None]
  - ARTHRALGIA [None]
  - ACNE [None]
  - DRY SKIN [None]
